FAERS Safety Report 8895656 (Version 2)
Quarter: 2016Q3

REPORT INFORMATION
  Report Type: Spontaneous
  Country: US (occurrence: US)
  Receive Date: 20121108
  Receipt Date: 20160915
  Transmission Date: 20161109
  Serious: Yes (Death, Hospitalization, Disabling, Other)
  Sender: FDA-Public Use
  Company Number: US-009507513-1210USA012361

PATIENT
  Sex: Male

DRUGS (3)
  1. FOSAMAX [Suspect]
     Active Substance: ALENDRONATE SODIUM
     Dosage: 35 MG, QW
     Route: 048
     Dates: start: 20080501
  2. FOSAMAX [Suspect]
     Active Substance: ALENDRONATE SODIUM
     Indication: OSTEOPOROSIS
     Dosage: 70 MG, UNKNOWN
     Route: 048
     Dates: start: 20060612, end: 20080122
  3. ALENDRONATE SODIUM. [Suspect]
     Active Substance: ALENDRONATE SODIUM
     Indication: OSTEOPOROSIS
     Dosage: 35 MG, QW
     Route: 048
     Dates: start: 20080630, end: 20101003

REACTIONS (15)
  - Femur fracture [Unknown]
  - Chronic kidney disease [Unknown]
  - Fluid overload [Unknown]
  - Thrombocytopenia [Unknown]
  - Acute kidney injury [Recovering/Resolving]
  - Low turnover osteopathy [Unknown]
  - Prostate cancer [Unknown]
  - Death [Fatal]
  - Fall [Unknown]
  - Hypertension [Unknown]
  - Femur fracture [Recovering/Resolving]
  - Bradycardia [Unknown]
  - Anaemia [Unknown]
  - Urinary tract infection [Recovering/Resolving]
  - Hip fracture [Unknown]

NARRATIVE: CASE EVENT DATE: 20080527
